FAERS Safety Report 5721732-9 (Version None)
Quarter: 2008Q2

REPORT INFORMATION
  Report Type: 
  Country: None (occurrence: None)
  Receive Date: 20080429
  Receipt Date: 20070426
  Transmission Date: 20081010
  Serious: No
  Sender: FDA-Public Use
  Company Number: US-ASTRAZENECA-2007UW08128

PATIENT
  Age: 74 Year
  Sex: Male
  Weight: 81.4 kg

DRUGS (8)
  1. NEXIUM [Suspect]
     Indication: GASTROOESOPHAGEAL REFLUX DISEASE
     Route: 048
     Dates: start: 19980101, end: 20070401
  2. BYETTA [Suspect]
     Indication: TYPE 2 DIABETES MELLITUS
     Route: 058
     Dates: start: 20061126, end: 20061227
  3. BYETTA [Suspect]
     Route: 058
     Dates: start: 20061228, end: 20070101
  4. BYETTA [Suspect]
     Route: 058
     Dates: start: 20070101
  5. BYETTA [Suspect]
     Route: 058
     Dates: start: 20070101, end: 20070101
  6. ACTOS [Concomitant]
     Dates: end: 20061128
  7. ZANTAC [Concomitant]
     Dates: start: 19940101
  8. TUMS [Concomitant]

REACTIONS (7)
  - CONSTIPATION [None]
  - DECREASED APPETITE [None]
  - DYSPEPSIA [None]
  - GASTROOESOPHAGEAL REFLUX DISEASE [None]
  - INJECTION SITE HAEMORRHAGE [None]
  - NAUSEA [None]
  - WEIGHT DECREASED [None]
